FAERS Safety Report 8814690 (Version 1)
Quarter: 2012Q4

REPORT INFORMATION
  Report Type: 
  Country: FR (occurrence: FR)
  Receive Date: 20120928
  Receipt Date: 20120928
  Transmission Date: 20130627
  Serious: Yes (Death, Hospitalization)
  Sender: FDA-Public Use
  Company Number: FR-GENZYME-200832939GPV

PATIENT
  Age: 61 Year
  Sex: Female
  Weight: 85 kg

DRUGS (3)
  1. CAMPATH [Suspect]
     Indication: CHRONIC LYMPHOCYTIC LEUKAEMIA
     Dosage: DAYS 1-3 PER CYCLE
     Route: 058
     Dates: start: 20080708, end: 20081029
  2. FLUDARA [Suspect]
     Indication: CHRONIC LYMPHOCYTIC LEUKAEMIA
     Dosage: DAYS 1-3 PER CYCLE
     Route: 048
     Dates: start: 20080708, end: 20081029
  3. CYCLOPHOSPHAMIDE [Suspect]
     Indication: CHRONIC LYMPHOCYTIC LEUKAEMIA
     Dosage: DAYS 1-3 PER CYCLE
     Route: 048
     Dates: start: 20080708, end: 20081029

REACTIONS (2)
  - Richter^s syndrome [Fatal]
  - Febrile neutropenia [Fatal]
